FAERS Safety Report 7428719-9 (Version None)
Quarter: 2011Q2

REPORT INFORMATION
  Report Type: 
  Country: None (occurrence: None)
  Receive Date: 20110413
  Receipt Date: 20110329
  Transmission Date: 20111010
  Serious: Yes (Other)
  Sender: FDA-Public Use
  Company Number: 08-AUR-04098

PATIENT
  Age: 33 Year
  Sex: Female

DRUGS (4)
  1. EFFEXOR [Suspect]
     Indication: DEPRESSION
     Dosage: 37.5 MG - ORAL
     Route: 048
     Dates: start: 20080101, end: 20080301
  2. EFFEXOR [Suspect]
     Indication: DEPRESSION
     Dosage: 75MG-ORAL
     Route: 048
     Dates: start: 20080301, end: 20080401
  3. MIRTAZAPINE [Suspect]
     Indication: DEPRESSION
     Dosage: 45MG - DAILY - ORAL
     Route: 048
  4. EFFEXOR [Suspect]
     Indication: DEPRESSION
     Dosage: 150-BID-ORAL
     Route: 048
     Dates: start: 20080401

REACTIONS (1)
  - PARAESTHESIA [None]
